FAERS Safety Report 15468112 (Version 1)
Quarter: 2018Q4

REPORT INFORMATION
  Report Type: Spontaneous
  Country: US (occurrence: US)
  Receive Date: 20181005
  Receipt Date: 20181005
  Transmission Date: 20190204
  Serious: Yes (Other)
  Sender: FDA-Public Use
  Company Number: US-LUPIN HEALTHCARE (UK) LIMITED-2018-06847

PATIENT
  Sex: Female

DRUGS (1)
  1. LISINOPRIL TABLETS USP, 2.5MG [Suspect]
     Active Substance: LISINOPRIL
     Indication: BLOOD PRESSURE ABNORMAL
     Dosage: 2.5 MG, QD (TAKING FOR YEARS)
     Route: 065

REACTIONS (3)
  - Tongue neoplasm malignant stage unspecified [Unknown]
  - Condition aggravated [Unknown]
  - Hypoacusis [Unknown]
